FAERS Safety Report 10146579 (Version 1)
Quarter: 2014Q2

REPORT INFORMATION
  Report Type: Spontaneous
  Country: US (occurrence: US)
  Receive Date: 20140501
  Receipt Date: 20140501
  Transmission Date: 20141212
  Serious: No
  Sender: FDA-Public Use
  Company Number: US-BAXTER-2014BAX019065

PATIENT
  Age: 84 Year
  Sex: Male
  Weight: 79.45 kg

DRUGS (1)
  1. GAMMAGARD LIQUID [Suspect]
     Indication: IMMUNOGLOBULINS DECREASED
     Route: 042
     Dates: start: 20140402

REACTIONS (5)
  - Malaise [Recovering/Resolving]
  - Tremor [Recovering/Resolving]
  - Bedridden [Recovering/Resolving]
  - Muscular weakness [Recovering/Resolving]
  - Fall [Recovering/Resolving]
